FAERS Safety Report 9559752 (Version 1)
Quarter: 2013Q3

REPORT INFORMATION
  Report Type: Spontaneous
  Country: US (occurrence: None)
  Receive Date: 20130906
  Receipt Date: 20130906
  Transmission Date: 20140515
  Serious: Yes (Other)
  Sender: FDA-Public Use
  Company Number: 163-POMAL-13072834

PATIENT
  Age: 85 Year
  Sex: Female

DRUGS (7)
  1. POMALYST [Suspect]
     Indication: PLASMA CELL MYELOMA
     Route: 048
     Dates: start: 20130515
  2. DIGOXIN [Concomitant]
  3. LASIX (FUROSEMIDE) [Concomitant]
  4. AMBIEN (ZOLPIDEM TARTRATE) [Concomitant]
  5. METOPROLOL [Concomitant]
  6. LABETALOL [Concomitant]
  7. TEMAZEPAM [Concomitant]

REACTIONS (1)
  - Anaemia [None]
